FAERS Safety Report 8165958-6 (Version None)
Quarter: 2012Q1

REPORT INFORMATION
  Report Type: 
  Country: None (occurrence: None)
  Receive Date: 20120227
  Receipt Date: 20111206
  Transmission Date: 20120608
  Serious: No
  Sender: FDA-Public Use
  Company Number: US-MYLANLABS-2011S1025210

PATIENT
  Sex: Female

DRUGS (3)
  1. AMNESTEEM [Suspect]
     Indication: ACNE
     Dosage: 2 CAPSULES QAM AND 1 CAPSULE QPM
     Route: 048
     Dates: start: 20110801, end: 20111205
  2. NUVARING [Concomitant]
     Indication: CONTRACEPTION
  3. AMNESTEEM [Suspect]
     Dosage: 2 CAPSULES QAM AND 1 CAPSULE QPM
     Route: 048
     Dates: start: 20110801, end: 20111205

REACTIONS (2)
  - NAUSEA [None]
  - VAGINAL DISCHARGE [None]
